FAERS Safety Report 23505290 (Version 3)
Quarter: 2024Q3

REPORT INFORMATION
  Report Type: Report from Study
  Country: JP (occurrence: JP)
  Receive Date: 20240209
  Receipt Date: 20240711
  Transmission Date: 20241017
  Serious: Yes (Hospitalization, Other)
  Sender: ROCHE
  Company Number: JP-CHUGAI-2023040242AA

PATIENT
  Age: 74 Year
  Sex: Male
  Weight: 49.6 kg

DRUGS (15)
  1. POLIVY [Suspect]
     Active Substance: POLATUZUMAB VEDOTIN-PIIQ
     Indication: Diffuse large B-cell lymphoma
     Route: 065
     Dates: start: 20230823, end: 20230823
  2. POLIVY [Suspect]
     Active Substance: POLATUZUMAB VEDOTIN-PIIQ
     Dosage: MOST RECENT DOSE: 08/DEC/2023
     Route: 065
     Dates: start: 20230915, end: 20231208
  3. CYCLOPHOSPHAMIDE [Concomitant]
     Active Substance: CYCLOPHOSPHAMIDE
     Indication: Diffuse large B-cell lymphoma
     Dosage: 1150 MILLIGRAM, SINGLE
     Route: 042
     Dates: start: 20230824, end: 20230824
  4. CYCLOPHOSPHAMIDE [Concomitant]
     Active Substance: CYCLOPHOSPHAMIDE
     Dosage: 1100 MILLIGRAM
     Route: 042
     Dates: start: 20230915, end: 20231208
  5. RITUXIMAB [Concomitant]
     Active Substance: RITUXIMAB
     Indication: Diffuse large B-cell lymphoma
     Dosage: 580 MILLIGRAM, SINGLE
     Dates: start: 20230823, end: 20230823
  6. RITUXIMAB [Concomitant]
     Active Substance: RITUXIMAB
     Dosage: 560 MILLIGRAM
     Dates: start: 20230915, end: 20231208
  7. DOXORUBICIN HYDROCHLORIDE [Concomitant]
     Active Substance: DOXORUBICIN HYDROCHLORIDE
     Indication: Diffuse large B-cell lymphoma
     Dosage: 75 MILLIGRAM
     Route: 042
     Dates: start: 20230824, end: 20231208
  8. PREDNISOLONE [Concomitant]
     Active Substance: PREDNISOLONE
     Indication: Diffuse large B-cell lymphoma
     Dosage: 80 MILLIGRAM, QD
     Route: 050
     Dates: start: 20230824, end: 20230828
  9. PREDNISOLONE [Concomitant]
     Active Substance: PREDNISOLONE
     Dosage: 80 MILLIGRAM, QD
     Route: 050
     Dates: start: 20230915, end: 20230919
  10. PREDNISOLONE [Concomitant]
     Active Substance: PREDNISOLONE
     Dosage: 80 MILLIGRAM, QD
     Route: 050
     Dates: start: 20231006, end: 20231010
  11. PREDNISOLONE [Concomitant]
     Active Substance: PREDNISOLONE
     Dosage: 80 MILLIGRAM, QD
     Route: 050
     Dates: start: 20231027, end: 20231031
  12. PREDNISOLONE [Concomitant]
     Active Substance: PREDNISOLONE
     Dosage: 80 MILLIGRAM, QD
     Route: 050
     Dates: start: 20231117, end: 20231121
  13. FILGRASTIM [Concomitant]
     Active Substance: FILGRASTIM
     Dosage: UNK
  14. PEGFILGRASTIM [Concomitant]
     Active Substance: PEGFILGRASTIM
     Dosage: UNK
  15. METHYLPREDNISOLONE [Concomitant]
     Active Substance: METHYLPREDNISOLONE
     Indication: Diffuse large B-cell lymphoma
     Dosage: 125 MILLIGRAM, SINGLE
     Dates: start: 20230823, end: 20230823

REACTIONS (5)
  - Aspiration [Unknown]
  - Platelet count decreased [Recovered/Resolved]
  - Febrile neutropenia [Recovered/Resolved]
  - Neutrophil count decreased [Recovered/Resolved]
  - Loss of consciousness [Unknown]

NARRATIVE: CASE EVENT DATE: 20230901
